FAERS Safety Report 4289750-8 (Version None)
Quarter: 2004Q1

REPORT INFORMATION
  Report Type: 
  Country: None (occurrence: None)
  Receive Date: 20040210
  Receipt Date: 20031127
  Transmission Date: 20041129
  Serious: Yes (Other)
  Sender: FDA-Public Use
  Company Number: CA-GLAXOSMITHKLINE-A0441506A

PATIENT
  Sex: Male
  Weight: 85 kg

DRUGS (2)
  1. TRIZIVIR [Suspect]
     Indication: ILL-DEFINED DISORDER
     Dosage: 300MG TWICE PER DAY
     Route: 048
     Dates: start: 20031008
  2. SUSTIVA [Concomitant]
     Indication: HIV INFECTION
     Dosage: 600MG PER DAY
     Route: 048
     Dates: start: 20031008

REACTIONS (14)
  - DEMENTIA [None]
  - DISABILITY [None]
  - EAR DISORDER [None]
  - FACIAL PALSY [None]
  - FATIGUE [None]
  - HEADACHE [None]
  - HYPERSOMNIA [None]
  - HYPOACUSIS [None]
  - NAUSEA [None]
  - OTOTOXICITY [None]
  - TINNITUS [None]
  - TYMPANIC MEMBRANE DISORDER [None]
  - VERTIGO [None]
  - VOMITING [None]
